FAERS Safety Report 7368787-6 (Version None)
Quarter: 2011Q1

REPORT INFORMATION
  Report Type: 
  Country: None (occurrence: None)
  Receive Date: 20110304
  Receipt Date: 20101029
  Transmission Date: 20110831
  Serious: Yes (Life-Threatening, Hospitalization)
  Sender: FDA-Public Use
  Company Number: CLOF-10794

PATIENT
  Age: 74 Year
  Sex: Male

DRUGS (15)
  1. ALLOPURINOL [Concomitant]
  2. PREVACID [Concomitant]
  3. NORVASC [Concomitant]
  4. SODIUM BICARBONATE IN PLASTIC CONTAINER [Concomitant]
  5. DECADRON (DEXAMETHASONE SODIUM SUCCINATE) [Concomitant]
  6. LIPITOR [Concomitant]
  7. ALBUMIN (ALBUMIN HUMAN, POTASSIUM) [Concomitant]
  8. FLOMAX [Concomitant]
  9. HYDROCHLOROTHIAZIDE LISINOPRIL (HYDROCHLOROTHIAZIDE) [Concomitant]
  10. CLOFARABINE [Suspect]
     Indication: MYELOID LEUKAEMIA
     Dosage: 40 MG/M2, INTRAVENOUS
     Route: 042
     Dates: start: 20071203, end: 20071203
  11. CYTARABINE [Suspect]
     Indication: MYELOID LEUKAEMIA
     Dosage: 1G/M2
     Dates: start: 20071203, end: 20071203
  12. ASPIRIN [Concomitant]
  13. CENTRUM (VITAMINS NOS, MINERALS NOS) [Concomitant]
  14. COLCHICINE [Concomitant]
  15. GLIPIZIDE [Concomitant]

REACTIONS (20)
  - AORTIC VALVE SCLEROSIS [None]
  - AORTIC ARTERIOSCLEROSIS [None]
  - NODAL ARRHYTHMIA [None]
  - LEFT VENTRICULAR DYSFUNCTION [None]
  - HYPOTENSION [None]
  - FATIGUE [None]
  - CARDIOGENIC SHOCK [None]
  - HYPONATRAEMIA [None]
  - DILATATION VENTRICULAR [None]
  - MITRAL VALVE CALCIFICATION [None]
  - ALTERED STATE OF CONSCIOUSNESS [None]
  - SEPTIC SHOCK [None]
  - MULTI-ORGAN FAILURE [None]
  - RESPIRATORY ACIDOSIS [None]
  - METABOLIC ACIDOSIS [None]
  - TRICUSPID VALVE INCOMPETENCE [None]
  - RENAL FAILURE ACUTE [None]
  - MITRAL VALVE INCOMPETENCE [None]
  - MYOCARDIAL INFARCTION [None]
  - BRADYCARDIA [None]
